FAERS Safety Report 21093552 (Version 1)
Quarter: 2022Q3

REPORT INFORMATION
  Report Type: Spontaneous
  Country: US (occurrence: US)
  Receive Date: 20220718
  Receipt Date: 20220718
  Transmission Date: 20221027
  Serious: No
  Sender: FDA-Public Use
  Company Number: US-NOVARTISTESTPH-NVSC2022US162063

PATIENT
  Sex: Female

DRUGS (2)
  1. XIIDRA [Suspect]
     Active Substance: LIFITEGRAST
     Indication: Dry eye
     Dosage: 1 DOSAGE FORM, BID
     Route: 065
  2. NADOLOL [Concomitant]
     Active Substance: NADOLOL
     Indication: Blood pressure measurement
     Route: 065

REACTIONS (1)
  - Vision blurred [Unknown]
